FAERS Safety Report 5763831-1 (Version None)
Quarter: 2008Q2

REPORT INFORMATION
  Report Type: 
  Country: None (occurrence: None)
  Receive Date: 20080602
  Receipt Date: 20080207
  Transmission Date: 20081010
  Serious: Yes (Other)
  Sender: FDA-Public Use
  Company Number: PHEH2008US01651

PATIENT
  Age: 75 Year
  Sex: Male
  Weight: 102 kg

DRUGS (6)
  1. TEKTURNA [Suspect]
     Dosage: 150 MG, BID
     Dates: start: 20070501, end: 20080204
  2. MAXZIDE [Concomitant]
  3. MICARDIS [Concomitant]
  4. NORVASC [Concomitant]
  5. HYDRALAZINE HCL [Concomitant]
  6. SIMVASTATIN [Concomitant]

REACTIONS (2)
  - ANGIOEDEMA [None]
  - OEDEMA PERIPHERAL [None]
